FAERS Safety Report 18678454 (Version 3)
Quarter: 2021Q3

REPORT INFORMATION
  Report Type: Spontaneous
  Country: US (occurrence: US)
  Receive Date: 20201229
  Receipt Date: 20210730
  Transmission Date: 20211014
  Serious: No
  Sender: FDA-Public Use
  Company Number: US-PFIZER INC-2020459174

PATIENT
  Age: 61 Year
  Sex: Female

DRUGS (2)
  1. XELJANZ XR [Suspect]
     Active Substance: TOFACITINIB CITRATE
     Indication: RHEUMATOID ARTHRITIS
     Dosage: 11 MG, 1X/DAY
     Route: 048
     Dates: start: 202006
  2. VIIBRYD [Concomitant]
     Active Substance: VILAZODONE HYDROCHLORIDE
     Dosage: UNK

REACTIONS (7)
  - Hand deformity [Unknown]
  - Product dose omission in error [Unknown]
  - Osteoporosis [Unknown]
  - Dry skin [Unknown]
  - Abdominal discomfort [Unknown]
  - Hypertension [Unknown]
  - Eructation [Unknown]

NARRATIVE: CASE EVENT DATE: 2020
